FAERS Safety Report 22518132 (Version 1)
Quarter: 2023Q2

REPORT INFORMATION
  Report Type: Report from Study
  Country: US (occurrence: US)
  Receive Date: 20230605
  Receipt Date: 20230605
  Transmission Date: 20230722
  Serious: Yes (Hospitalization)
  Sender: FDA-Public Use
  Company Number: US-ABBVIE-5181630

PATIENT
  Sex: Male

DRUGS (1)
  1. IMBRUVICA [Suspect]
     Active Substance: IBRUTINIB
     Indication: Acute myeloid leukaemia
     Dosage: FORM STRENGTH: 420 MG
     Route: 048

REACTIONS (2)
  - Aspiration [Recovering/Resolving]
  - Infection [Recovering/Resolving]
